FAERS Safety Report 18962768 (Version 1)
Quarter: 2021Q1

REPORT INFORMATION
  Report Type: Spontaneous
  Country: US (occurrence: US)
  Receive Date: 20210302
  Receipt Date: 20210302
  Transmission Date: 20210420
  Serious: No
  Sender: FDA-Public Use
  Company Number: None

PATIENT
  Age: 50 Year
  Sex: Male
  Weight: 116.26 kg

DRUGS (1)
  1. INFLIXIMAB?DYYB (INFLIXIMAB?DYYB 100MG/VIL INJ, LYPL) [Suspect]
     Active Substance: INFLIXIMAB-DYYB
     Indication: COLITIS ULCERATIVE
     Dosage: ?          OTHER ROUTE:IV?
     Route: 042
     Dates: start: 20181213, end: 20181213

REACTIONS (6)
  - Headache [None]
  - Nausea [None]
  - Angina pectoris [None]
  - Myalgia [None]
  - Vomiting [None]
  - Flushing [None]

NARRATIVE: CASE EVENT DATE: 20181213
